FAERS Safety Report 18176308 (Version 1)
Quarter: 2020Q3

REPORT INFORMATION
  Report Type: Spontaneous
  Country: US (occurrence: US)
  Receive Date: 20200820
  Receipt Date: 20200820
  Transmission Date: 20201103
  Serious: No
  Sender: FDA-Public Use
  Company Number: US-009507513-2008USA010198

PATIENT
  Age: 35 Year
  Sex: Female
  Weight: 96.15 kg

DRUGS (2)
  1. NEXPLANON [Suspect]
     Active Substance: ETONOGESTREL
     Dosage: IMPLANT
     Route: 059
     Dates: start: 20200723, end: 202008
  2. NEXPLANON [Suspect]
     Active Substance: ETONOGESTREL
     Dosage: IMPLANT PLACED IN OTHER ARM
     Route: 059
     Dates: start: 202008

REACTIONS (2)
  - Device expulsion [Recovered/Resolved]
  - No adverse event [Unknown]

NARRATIVE: CASE EVENT DATE: 20200817
